FAERS Safety Report 21598340 (Version 2)
Quarter: 2024Q2

REPORT INFORMATION
  Report Type: Report from Study
  Country: US (occurrence: US)
  Receive Date: 20221115
  Receipt Date: 20240415
  Transmission Date: 20240716
  Serious: No
  Sender: FDA-Public Use
  Company Number: US-ABBVIE-22K-163-4422087-00

PATIENT
  Sex: Male

DRUGS (6)
  1. VENCLEXTA [Suspect]
     Active Substance: VENETOCLAX
     Indication: Chronic lymphocytic leukaemia
     Dosage: STOP DATE JAN 2022
     Route: 048
     Dates: start: 20220101
  2. VENCLEXTA [Suspect]
     Active Substance: VENETOCLAX
     Indication: Chronic lymphocytic leukaemia
     Route: 048
  3. VENCLEXTA [Suspect]
     Active Substance: VENETOCLAX
     Indication: Chronic lymphocytic leukaemia
     Route: 048
     Dates: start: 20220111
  4. PFIZER-BIONTECH COVID-19 VACCINE [Concomitant]
     Active Substance: TOZINAMERAN
     Indication: COVID-19 immunisation
     Dosage: FIRST DOSE?ONE IN ONCE
     Route: 030
     Dates: start: 202012, end: 202012
  5. PFIZER-BIONTECH COVID-19 VACCINE [Concomitant]
     Active Substance: TOZINAMERAN
     Indication: COVID-19 immunisation
     Dosage: SECOND DOSE?ONE IN ONCE
     Route: 030
     Dates: start: 202101, end: 202101
  6. PFIZER-BIONTECH COVID-19 VACCINE [Concomitant]
     Active Substance: TOZINAMERAN
     Indication: COVID-19 immunisation
     Dosage: BOOSTER DOSE?ONE IN ONCE
     Route: 030

REACTIONS (6)
  - Fatigue [Not Recovered/Not Resolved]
  - Nasopharyngitis [Not Recovered/Not Resolved]
  - Glycosylated haemoglobin decreased [Not Recovered/Not Resolved]
  - Increased tendency to bruise [Not Recovered/Not Resolved]
  - Contusion [Not Recovered/Not Resolved]
  - Feeling cold [Not Recovered/Not Resolved]

NARRATIVE: CASE EVENT DATE: 20220101
